FAERS Safety Report 4690824-8 (Version None)
Quarter: 2005Q2

REPORT INFORMATION
  Report Type: 
  Country: None (occurrence: None)
  Receive Date: 20050611
  Receipt Date: 20050607
  Transmission Date: 20051028
  Serious: Yes (Hospitalization)
  Sender: FDA-Public Use
  Company Number: 200509342

PATIENT
  Age: 50 Year
  Sex: Female
  Weight: 100 kg

DRUGS (7)
  1. HUMATE-P [Suspect]
     Indication: ANAL SPHINCTEROTOMY
     Dosage: SEE IMAGE
     Route: 042
     Dates: start: 20050110, end: 20050110
  2. HUMATE-P [Suspect]
     Indication: VON WILLEBRAND'S DISEASE
     Dosage: SEE IMAGE
     Route: 042
     Dates: start: 20050110, end: 20050110
  3. HUMATE-P [Suspect]
     Indication: ANAL SPHINCTEROTOMY
     Dosage: SEE IMAGE
     Route: 042
     Dates: start: 20050113, end: 20050113
  4. HUMATE-P [Suspect]
     Indication: VON WILLEBRAND'S DISEASE
     Dosage: SEE IMAGE
     Route: 042
     Dates: start: 20050113, end: 20050113
  5. HUMATE-P [Suspect]
     Indication: ANAL SPHINCTEROTOMY
     Dosage: SEE IMAGE
     Route: 042
     Dates: start: 20050113, end: 20050113
  6. HUMATE-P [Suspect]
     Indication: VON WILLEBRAND'S DISEASE
     Dosage: SEE IMAGE
     Route: 042
     Dates: start: 20050113, end: 20050113
  7. HUMATE-P [Suspect]

REACTIONS (11)
  - ANURIA [None]
  - BLADDER SPASM [None]
  - DYSURIA [None]
  - HAEMORRHOIDS [None]
  - PAIN [None]
  - PHLEBOTHROMBOSIS [None]
  - POST PROCEDURAL HAEMORRHAGE [None]
  - PROCEDURAL COMPLICATION [None]
  - PROCTALGIA [None]
  - UNDERDOSE [None]
  - VAGINISMUS [None]
